FAERS Safety Report 21960566 (Version 1)
Quarter: 2023Q1

REPORT INFORMATION
  Report Type: Spontaneous
  Country: CO (occurrence: CO)
  Receive Date: 20230207
  Receipt Date: 20230207
  Transmission Date: 20230418
  Serious: Yes (Hospitalization)
  Sender: FDA-Public Use
  Company Number: CO-JNJFOC-20230207988

PATIENT
  Age: 30 Year
  Sex: Female

DRUGS (1)
  1. INVEGA [Suspect]
     Active Substance: PALIPERIDONE
     Indication: Product used for unknown indication
     Route: 048

REACTIONS (1)
  - Mania [Unknown]
